FAERS Safety Report 24655592 (Version 1)
Quarter: 2024Q4

REPORT INFORMATION
  Report Type: Spontaneous
  Country: IT (occurrence: IT)
  Receive Date: 20241123
  Receipt Date: 20241123
  Transmission Date: 20250115
  Serious: Yes (Other)
  Sender: ABBVIE
  Company Number: IT-Santen Oy-2024-ITA-011754

PATIENT
  Sex: Male

DRUGS (4)
  1. ALPHAGAN P [Suspect]
     Active Substance: BRIMONIDINE TARTRATE
     Indication: Product used for unknown indication
     Dosage: UNK
     Route: 047
  2. LATANOPROST\NETARSUDIL MESYLATE [Suspect]
     Active Substance: LATANOPROST\NETARSUDIL MESYLATE
     Indication: Glaucoma
     Dosage: UNK
     Route: 065
     Dates: start: 20241107
  3. DORZOLAMIDE HYDROCHLORIDE\TIMOLOL MALEATE [Suspect]
     Active Substance: DORZOLAMIDE HYDROCHLORIDE\TIMOLOL MALEATE
     Indication: Product used for unknown indication
     Dosage: (UNSPECIFIED SANTEN PRODUCT)
     Route: 065
  4. LUMIGAN [Suspect]
     Active Substance: BIMATOPROST
     Indication: Product used for unknown indication
     Dosage: UNK
     Route: 047

REACTIONS (5)
  - Cataract [Unknown]
  - Drug ineffective [Unknown]
  - Intraocular pressure increased [Unknown]
  - Vision blurred [Recovered/Resolved]
  - Visual impairment [Recovered/Resolved]

NARRATIVE: CASE EVENT DATE: 20241107
